FAERS Safety Report 8431879-4 (Version None)
Quarter: 2012Q2

REPORT INFORMATION
  Report Type: 
  Country: None (occurrence: None)
  Receive Date: 20120607
  Receipt Date: 20120607
  Transmission Date: 20120825
  Serious: Yes (Hospitalization)
  Sender: FDA-Public Use
  Company Number: None

PATIENT
  Age: 42 Year
  Sex: Male
  Weight: 118.2 kg

DRUGS (2)
  1. XARELTO [Suspect]
     Indication: THROMBOEMBOLECTOMY
     Dosage: 15 MG, 21 DAYS, PO
     Route: 048
     Dates: start: 20120210, end: 20120303
  2. XARELTO [Suspect]
     Indication: ARTERIAL OCCLUSIVE DISEASE
     Dosage: 15 MG, 21 DAYS, PO
     Route: 048
     Dates: start: 20120210, end: 20120303

REACTIONS (4)
  - INTERNATIONAL NORMALISED RATIO INCREASED [None]
  - HAEMOPTYSIS [None]
  - BLOOD CREATININE INCREASED [None]
  - PNEUMONIA [None]
